FAERS Safety Report 15781881 (Version 1)
Quarter: 2019Q1

REPORT INFORMATION
  Report Type: Spontaneous
  Country: US (occurrence: US)
  Receive Date: 20190102
  Receipt Date: 20190102
  Transmission Date: 20190417
  Serious: Yes (Life-Threatening, Hospitalization, Disabling, Other)
  Sender: FDA-Public Use
  Company Number: US-009507513-1812USA012949

PATIENT
  Sex: Female

DRUGS (1)
  1. JANUVIA [Suspect]
     Active Substance: SITAGLIPTIN PHOSPHATE
     Indication: DIABETES MELLITUS
     Dosage: 100 MILLIGRAM
     Route: 048
     Dates: start: 20181031

REACTIONS (7)
  - Hyperglycaemic hyperosmolar nonketotic syndrome [Unknown]
  - Drug ineffective [Unknown]
  - Dizziness [Unknown]
  - Influenza [Unknown]
  - Vision blurred [Not Recovered/Not Resolved]
  - Headache [Unknown]
  - Yellow skin [Unknown]

NARRATIVE: CASE EVENT DATE: 2018
